FAERS Safety Report 10471244 (Version 2)
Quarter: 2014Q3

REPORT INFORMATION
  Report Type: Spontaneous
  Country: BR (occurrence: BR)
  Receive Date: 20140923
  Receipt Date: 20140923
  Transmission Date: 20150326
  Serious: Yes (Other)
  Sender: FDA-Public Use
  Company Number: PHHY2013BR136179

PATIENT
  Sex: Female
  Weight: 93 kg

DRUGS (2)
  1. TRILEPTAL [Suspect]
     Active Substance: OXCARBAZEPINE
     Dosage: FOETAL DRUG EXPOSURE VIA FATHER
  2. TRILEPTAL [Suspect]
     Active Substance: OXCARBAZEPINE
     Dosage: FOETAL DRUG EXPOSURE VIA FATHER (DOSE INCREASED)

REACTIONS (2)
  - Exposure via father [Unknown]
  - Abortion spontaneous [Recovered/Resolved]
